FAERS Safety Report 7752078-5 (Version None)
Quarter: 2011Q3

REPORT INFORMATION
  Report Type: 
  Country: None (occurrence: None)
  Receive Date: 20110915
  Receipt Date: 20100513
  Transmission Date: 20111222
  Serious: No
  Sender: FDA-Public Use
  Company Number: US-BAYER-201023092NA

PATIENT
  Age: 27 Year
  Sex: Female

DRUGS (4)
  1. MIRENA [Suspect]
     Dosage: 20 ?G/D, CONT
     Route: 015
     Dates: start: 20090101
  2. ZOLOFT [Concomitant]
     Indication: ANXIETY
  3. MIRTAZAPINE [Concomitant]
     Indication: ANXIETY
  4. SERTRALINE HYDROCHLORIDE [Concomitant]
     Indication: ANXIETY

REACTIONS (1)
  - AMENORRHOEA [None]
